FAERS Safety Report 5413495-1 (Version None)
Quarter: 2007Q3

REPORT INFORMATION
  Report Type: 
  Country: None (occurrence: None)
  Receive Date: 20070814
  Receipt Date: 20070810
  Transmission Date: 20080115
  Serious: Yes (Other)
  Sender: FDA-Public Use
  Company Number: DE-BRISTOL-MYERS SQUIBB COMPANY-13867080

PATIENT
  Age: 43 Year
  Sex: Male

DRUGS (4)
  1. REYATAZ [Suspect]
     Indication: HIV INFECTION
     Route: 048
     Dates: start: 20040401, end: 20070801
  2. PARACETAMOL [Suspect]
     Indication: INFLUENZA
     Route: 048
     Dates: start: 20070722
  3. TRUVADA [Suspect]
     Indication: HIV INFECTION
  4. NORVIR [Concomitant]
     Indication: HIV INFECTION
     Route: 048
     Dates: start: 20040401, end: 20070801

REACTIONS (4)
  - ANAEMIA MACROCYTIC [None]
  - INTRAVASCULAR HAEMOLYSIS [None]
  - JAUNDICE [None]
  - PYREXIA [None]
